FAERS Safety Report 4270114-8 (Version None)
Quarter: 2004Q1

REPORT INFORMATION
  Report Type: 
  Country: None (occurrence: None)
  Receive Date: 20040114
  Receipt Date: 20030402
  Transmission Date: 20041129
  Serious: No
  Sender: FDA-Public Use
  Company Number: US-GLAXOSMITHKLINE-A0403099A

PATIENT
  Age: 55 Year
  Sex: Male

DRUGS (2)
  1. WELLBUTRIN [Suspect]
     Indication: POST-TRAUMATIC STRESS DISORDER
     Dosage: 200MG PER DAY
     Route: 048
     Dates: start: 20000101
  2. MONOPRIL [Concomitant]

REACTIONS (1)
  - HALLUCINATION, VISUAL [None]
